FAERS Safety Report 17422844 (Version 1)
Quarter: 2020Q1

REPORT INFORMATION
  Report Type: Spontaneous
  Country: RU (occurrence: RU)
  Receive Date: 20200215
  Receipt Date: 20200215
  Transmission Date: 20200409
  Serious: Yes (Hospitalization)
  Sender: FDA-Public Use
  Company Number: NVSC2020RU042108

PATIENT
  Age: 11 Year
  Sex: Male
  Weight: 40 kg

DRUGS (1)
  1. TEGRETOL [Suspect]
     Active Substance: CARBAMAZEPINE
     Indication: PRODUCT USED FOR UNKNOWN INDICATION
     Dosage: 200 OT
     Route: 048
     Dates: start: 20190705, end: 20190710

REACTIONS (1)
  - Exfoliative rash [Recovering/Resolving]

NARRATIVE: CASE EVENT DATE: 20190710
